FAERS Safety Report 19249272 (Version 2)
Quarter: 2021Q2

REPORT INFORMATION
  Report Type: Spontaneous
  Country: CO (occurrence: CO)
  Receive Date: 20210512
  Receipt Date: 20210519
  Transmission Date: 20210717
  Serious: Yes (Other)
  Sender: FDA-Public Use
  Company Number: CO-BIOMARINAP-CO-2021-136412

PATIENT
  Age: 12 Year
  Sex: Male
  Weight: 25 kg

DRUGS (2)
  1. VIMIZIM [Suspect]
     Active Substance: ELOSULFASE ALFA
     Dosage: 50 MILLIGRAM, QW
     Route: 042
     Dates: start: 20140716
  2. VIMIZIM [Suspect]
     Active Substance: ELOSULFASE ALFA
     Indication: MUCOPOLYSACCHARIDOSIS IV
     Dosage: 2 MILLIGRAM/KILOGRAM
     Route: 042
     Dates: start: 2016

REACTIONS (4)
  - Medical device implantation [Recovered/Resolved]
  - Developmental hip dysplasia [Recovered/Resolved]
  - Knee deformity [Recovered/Resolved]
  - Medical device removal [Recovered/Resolved]

NARRATIVE: CASE EVENT DATE: 20210504
